FAERS Safety Report 10739649 (Version 2)
Quarter: 2015Q1

REPORT INFORMATION
  Report Type: Spontaneous
  Country: US (occurrence: US)
  Receive Date: 20150127
  Receipt Date: 20150201
  Transmission Date: 20150721
  Serious: No
  Sender: FDA-Public Use
  Company Number: US-009507513-1501USA008190

PATIENT
  Age: 60 Year
  Sex: Female

DRUGS (3)
  1. BELSOMRA [Suspect]
     Active Substance: SUVOREXANT
     Dosage: 20 MG, QHS, 30MINUTE BEFORE BEDTIME, AT THIRD NIGHT
     Route: 048
     Dates: start: 20150118, end: 20150118
  2. BELSOMRA [Suspect]
     Active Substance: SUVOREXANT
     Dosage: 30 MG, QHS, 30MINUTE BEFORE BEDTIME, AT FOURTH NIGHT
     Route: 048
     Dates: start: 20150119
  3. BELSOMRA [Suspect]
     Active Substance: SUVOREXANT
     Indication: INSOMNIA
     Dosage: 10 MG, QHS, 30 MINUTE BEFORE BEDTIME, TWO NIGHTS
     Route: 048
     Dates: start: 20150116, end: 20150117

REACTIONS (6)
  - Drug ineffective [Unknown]
  - Drug ineffective [Unknown]
  - Drug ineffective [Unknown]
  - Drug ineffective [Unknown]
  - No adverse event [Unknown]
  - Overdose [Unknown]

NARRATIVE: CASE EVENT DATE: 20150116
